FAERS Safety Report 15790226 (Version 1)
Quarter: 2019Q1

REPORT INFORMATION
  Report Type: Spontaneous
  Country: US (occurrence: US)
  Receive Date: 20190104
  Receipt Date: 20190104
  Transmission Date: 20190417
  Serious: No
  Sender: FDA-Public Use
  Company Number: US-SA-2019SA001827

PATIENT
  Age: 64 Year
  Sex: Female

DRUGS (1)
  1. KEVZARA [Suspect]
     Active Substance: SARILUMAB
     Indication: RHEUMATOID ARTHRITIS
     Dosage: 200 MG, QOW
     Dates: start: 20181016, end: 20181218

REACTIONS (6)
  - Abdominal distension [Unknown]
  - Hypersensitivity [Unknown]
  - Mouth swelling [Unknown]
  - Oral pain [Unknown]
  - Bone pain [Unknown]
  - Weight increased [Unknown]

NARRATIVE: CASE EVENT DATE: 20181120
